FAERS Safety Report 6084819-X (Version None)
Quarter: 2009Q1

REPORT INFORMATION
  Report Type: 
  Country: None (occurrence: None)
  Receive Date: 20090218
  Receipt Date: 20090210
  Transmission Date: 20090719
  Serious: Yes (Life-Threatening)
  Sender: FDA-Public Use
  Company Number: 156722

PATIENT
  Age: 39 Year
  Sex: Female
  Weight: 118 kg

DRUGS (8)
  1. ROCURONIUM BROMIDE [Suspect]
     Indication: GENERAL ANAESTHESIA
     Dosage: INTRAVENOUS
     Route: 042
     Dates: start: 20090101, end: 20090101
  2. SUCCINYLCHOLINE CHLORIDE [Concomitant]
  3. AZMACORT [Concomitant]
  4. GLUCOPHAGE [Concomitant]
  5. MULTI-VITAMINS [Concomitant]
  6. ORTHO TRI-CYCLEN [Concomitant]
  7. SYNTHROID [Concomitant]
  8. UNASYN ORAL [Concomitant]

REACTIONS (2)
  - DRUG EFFECT INCREASED [None]
  - DYSPNOEA [None]
